FAERS Safety Report 9196628 (Version 1)
Quarter: 2013Q1

REPORT INFORMATION
  Report Type: Spontaneous
  Country: DE (occurrence: DE)
  Receive Date: 20130328
  Receipt Date: 20130328
  Transmission Date: 20140127
  Serious: Yes (Other)
  Sender: FDA-Public Use
  Company Number: DE-AMGEN-DEUSP2013019512

PATIENT
  Sex: Female

DRUGS (2)
  1. PROLIA [Suspect]
     Indication: PRODUCT USED FOR UNKNOWN INDICATION
     Dosage: UNK
     Dates: start: 201208
  2. CORTICOSTEROID DERIVATIVES [Concomitant]
     Indication: VASCULITIS

REACTIONS (8)
  - Aphasia [Unknown]
  - Visual impairment [Unknown]
  - Contusion [Unknown]
  - Loose tooth [Unknown]
  - Tooth disorder [Unknown]
  - Rash pustular [Unknown]
  - Cystitis [Unknown]
  - Bone pain [Unknown]
